FAERS Safety Report 11023785 (Version 2)
Quarter: 2015Q2

REPORT INFORMATION
  Report Type: Spontaneous
  Country: US (occurrence: US)
  Receive Date: 20150413
  Receipt Date: 20150525
  Transmission Date: 20150821
  Serious: No
  Sender: FDA-Public Use
  Company Number: US-JNJFOC-20121106919

PATIENT
  Age: 81 Year
  Sex: Male
  Weight: 72.58 kg

DRUGS (1)
  1. LEVAQUIN [Suspect]
     Active Substance: LEVOFLOXACIN
     Indication: STAPHYLOCOCCUS TEST
     Route: 048
     Dates: start: 20121106, end: 20121110

REACTIONS (3)
  - Aponeurosis contusion [Not Recovered/Not Resolved]
  - Tendon disorder [Not Recovered/Not Resolved]
  - Muscular weakness [Not Recovered/Not Resolved]

NARRATIVE: CASE EVENT DATE: 201211
